FAERS Safety Report 24776479 (Version 1)
Quarter: 2024Q4

REPORT INFORMATION
  Report Type: Report from Study
  Country: US (occurrence: US)
  Receive Date: 20241226
  Receipt Date: 20241226
  Transmission Date: 20250114
  Serious: Yes (Other)
  Sender: JAZZ
  Company Number: US-JAZZ PHARMACEUTICALS-2023-US-015171

PATIENT
  Sex: Male

DRUGS (19)
  1. XYWAV [Suspect]
     Active Substance: CALCIUM OXYBATE\MAGNESIUM OXYBATE\POTASSIUM OXYBATE\SODIUM OXYBATE
     Indication: Narcolepsy
     Dosage: 3.5 GRAM, BID
     Route: 048
  2. XYWAV [Suspect]
     Active Substance: CALCIUM OXYBATE\MAGNESIUM OXYBATE\POTASSIUM OXYBATE\SODIUM OXYBATE
     Indication: Cataplexy
     Dosage: 2 GRAM FIRST DOSE AND 5 GRAM SECOND DOSE
  3. XYWAV [Suspect]
     Active Substance: CALCIUM OXYBATE\MAGNESIUM OXYBATE\POTASSIUM OXYBATE\SODIUM OXYBATE
     Indication: Somnolence
  4. ASPIRIN [Concomitant]
     Active Substance: ASPIRIN
     Dosage: UNK
  5. LIPITOR [Concomitant]
     Active Substance: ATORVASTATIN CALCIUM
     Dosage: UNK
  6. ASTELIN [Concomitant]
     Active Substance: AZELASTINE HYDROCHLORIDE
     Dosage: UNK
  7. BRILINTA [Concomitant]
     Active Substance: TICAGRELOR
     Dosage: UNK
  8. COREG [Concomitant]
     Active Substance: CARVEDILOL
     Dosage: UNK
  9. VITAMIN D3 [Concomitant]
     Active Substance: CHOLECALCIFEROL
     Dosage: UNK
  10. PLAVIX [Concomitant]
     Active Substance: CLOPIDOGREL BISULFATE
     Dosage: UNK
  11. FISH OIL [Concomitant]
     Active Substance: FISH OIL
     Dosage: UNK
  12. ENALAPRILAT [Concomitant]
     Active Substance: ENALAPRILAT
     Dosage: UNK
  13. FOLVITE [Concomitant]
     Active Substance: FOLIC ACID
     Dosage: UNK
  14. IMDUR [Concomitant]
     Active Substance: ISOSORBIDE MONONITRATE
     Dosage: UNK
  15. TOPROL XL [Concomitant]
     Active Substance: METOPROLOL SUCCINATE
     Dosage: UNK
  16. THERAGRAN [VITAMINS NOS] [Concomitant]
     Dosage: UNK
  17. NITROSTAT [Concomitant]
     Active Substance: NITROGLYCERIN
     Dosage: UNK
  18. XIFAXAN [Concomitant]
     Active Substance: RIFAXIMIN
     Dosage: UNK
  19. PROVIGIL [Concomitant]
     Active Substance: MODAFINIL
     Dosage: UNK

REACTIONS (10)
  - Colitis ulcerative [Unknown]
  - Abdominal discomfort [Unknown]
  - Cough [Unknown]
  - Drug intolerance [Unknown]
  - Malaise [Unknown]
  - Multiple allergies [Unknown]
  - Drug effect less than expected [Unknown]
  - Product administration interrupted [Unknown]
  - Product dose omission issue [Unknown]
  - Wrong dose [Unknown]
